FAERS Safety Report 19448653 (Version 1)
Quarter: 2021Q2

REPORT INFORMATION
  Report Type: Spontaneous
  Country: US (occurrence: US)
  Receive Date: 20210622
  Receipt Date: 20210622
  Transmission Date: 20210717
  Serious: No
  Sender: FDA-Public Use
  Company Number: US-GW PHARMA-202106USGW02943

PATIENT

DRUGS (7)
  1. EPIDIOLEX [Suspect]
     Active Substance: CANNABIDIOL
     Indication: SEIZURE
     Dosage: 2.5 MILLIGRAM/KILOGRAM, BID (250 MILLIGRAM)
     Route: 048
     Dates: start: 20210611
  2. CLONAZEPAM. [Concomitant]
     Active Substance: CLONAZEPAM
     Indication: AGITATION
     Dosage: 0.5 MILLIGRAM, PRN (1/2 TABLET AS NEEDED)
     Route: 048
  3. ZONISAMIDE. [Concomitant]
     Active Substance: ZONISAMIDE
     Indication: PRODUCT USED FOR UNKNOWN INDICATION
     Dosage: 300 MILLIGRAM, QD (3 TABLETS IN THE EVENING)
     Route: 048
  4. KEPPRA [Concomitant]
     Active Substance: LEVETIRACETAM
     Dosage: DOSE LOWERED
     Route: 065
  5. KEPPRA [Concomitant]
     Active Substance: LEVETIRACETAM
     Indication: SEIZURE
     Dosage: 1875 MILLIGRAM, QD (1 TABLET IN THE MORNING, AND 1.5 TABLETS IN THE EVENING)
     Route: 048
  6. OXCARBAZEPINE. [Concomitant]
     Active Substance: OXCARBAZEPINE
     Indication: PRODUCT USED FOR UNKNOWN INDICATION
     Dosage: 1500 MILLIGRAM, QD (1 TABLET IN THE MORNING, AND 1.5 TABLETS IN THE EVENING)
     Route: 048
  7. ESCITALOPRAM [Concomitant]
     Active Substance: ESCITALOPRAM OXALATE
     Indication: PRODUCT USED FOR UNKNOWN INDICATION
     Dosage: UNK
     Route: 048

REACTIONS (3)
  - Malaise [Recovered/Resolved with Sequelae]
  - Drooling [Recovered/Resolved with Sequelae]
  - Emotional disorder [Recovered/Resolved with Sequelae]

NARRATIVE: CASE EVENT DATE: 20210611
